FAERS Safety Report 20850833 (Version 5)
Quarter: 2022Q3

REPORT INFORMATION
  Report Type: Spontaneous
  Country: US (occurrence: US)
  Receive Date: 20220519
  Receipt Date: 20220818
  Transmission Date: 20221026
  Serious: Yes (Other)
  Sender: FDA-Public Use
  Company Number: US-PFIZER INC-202200655307

PATIENT
  Age: 59 Year
  Sex: Male

DRUGS (1)
  1. ELELYSO [Suspect]
     Active Substance: TALIGLUCERASE ALFA
     Dosage: UNK
     Dates: start: 202205

REACTIONS (4)
  - Drug hypersensitivity [Unknown]
  - Throat irritation [Unknown]
  - Oropharyngeal pain [Unknown]
  - Somnolence [Unknown]
